FAERS Safety Report 14421081 (Version 5)
Quarter: 2018Q1

REPORT INFORMATION
  Report Type: Spontaneous
  Country: US (occurrence: US)
  Receive Date: 20180122
  Receipt Date: 20180314
  Transmission Date: 20180509
  Serious: Yes (Hospitalization)
  Sender: FDA-Public Use
  Company Number: US-ACTELION-A-NJ2018-166073

PATIENT
  Age: 50 Year
  Sex: Female
  Weight: 54.88 kg

DRUGS (3)
  1. OPSUMIT [Suspect]
     Active Substance: MACITENTAN
     Indication: PULMONARY ARTERIAL HYPERTENSION
     Dosage: 10 MG, QD
     Route: 048
     Dates: start: 20171113
  2. ADEMPAS [Concomitant]
     Active Substance: RIOCIGUAT
  3. VELETRI [Suspect]
     Active Substance: EPOPROSTENOL
     Indication: PULMONARY ARTERIAL HYPERTENSION
     Dosage: 25 NG/KG, PER MIN
     Route: 042

REACTIONS (7)
  - Blood potassium decreased [Unknown]
  - Joint swelling [Unknown]
  - Arthralgia [Unknown]
  - Acute kidney injury [Unknown]
  - Gout [Unknown]
  - Fluid retention [Unknown]
  - Catheter site pruritus [Unknown]
